FAERS Safety Report 15544496 (Version 15)
Quarter: 2019Q4

REPORT INFORMATION
  Report Type: Report from Study
  Country: US (occurrence: US)
  Receive Date: 20181024
  Receipt Date: 20191211
  Transmission Date: 20200122
  Serious: Yes (Hospitalization, Other)
  Sender: FDA-Public Use
  Company Number: US-TESAROUBC-US-2018TSO04328

PATIENT
  Age: 72 Year
  Sex: Female

DRUGS (8)
  1. NIRAPARIB [Suspect]
     Active Substance: NIRAPARIB
     Dosage: 100 MG, QD
     Route: 048
  2. XIIDRA [Concomitant]
     Active Substance: LIFITEGRAST
     Indication: DRY EYE
     Dosage: UNK
  3. AMBIEN [Concomitant]
     Active Substance: ZOLPIDEM TARTRATE
     Indication: SLEEP DISORDER
  4. BIOTIN [Concomitant]
     Active Substance: BIOTIN
     Indication: PRODUCT USED FOR UNKNOWN INDICATION
     Dosage: UNK
  5. NIRAPARIB [Suspect]
     Active Substance: NIRAPARIB
     Indication: OVARIAN CANCER
     Dosage: 200 MG, QD
     Route: 048
     Dates: start: 20180820
  6. TYLENOL [Concomitant]
     Active Substance: ACETAMINOPHEN
     Indication: PRODUCT USED FOR UNKNOWN INDICATION
  7. NIRAPARIB [Suspect]
     Active Substance: NIRAPARIB
     Dosage: 100 MG, QPM WITHOUT FOOD
     Route: 048
     Dates: end: 20190220
  8. NIRAPARIB [Suspect]
     Active Substance: NIRAPARIB
     Dosage: 100 MG, QPM WITHOUT FOOD
     Route: 048
     Dates: start: 20190311

REACTIONS (35)
  - Headache [Recovering/Resolving]
  - Limb discomfort [Unknown]
  - Mobility decreased [Unknown]
  - Oropharyngeal pain [Unknown]
  - Haemoglobin decreased [Unknown]
  - Blood pressure increased [Not Recovered/Not Resolved]
  - Neuropathy peripheral [Not Recovered/Not Resolved]
  - Cataract [Unknown]
  - Sleep disorder [Not Recovered/Not Resolved]
  - Abscess [Unknown]
  - Dizziness [Not Recovered/Not Resolved]
  - Blood creatinine increased [Not Recovered/Not Resolved]
  - Abdominal discomfort [Unknown]
  - Feeling abnormal [Not Recovered/Not Resolved]
  - Hypoaesthesia [Not Recovered/Not Resolved]
  - White blood cell count decreased [Not Recovered/Not Resolved]
  - Dyspnoea [Not Recovered/Not Resolved]
  - Product dose omission [Unknown]
  - Escherichia infection [Unknown]
  - Post procedural complication [Recovering/Resolving]
  - Hypotension [Not Recovered/Not Resolved]
  - Heart rate irregular [Unknown]
  - Insomnia [Recovering/Resolving]
  - Fatigue [Not Recovered/Not Resolved]
  - Dry eye [Not Recovered/Not Resolved]
  - Throat irritation [Unknown]
  - Procedural pain [Unknown]
  - Abdominal pain [Not Recovered/Not Resolved]
  - Hernia [Recovering/Resolving]
  - Wound [Unknown]
  - Balance disorder [Not Recovered/Not Resolved]
  - Abdominal distension [Not Recovered/Not Resolved]
  - Decreased appetite [Not Recovered/Not Resolved]
  - Haematocrit decreased [Unknown]
  - Exposure to toxic agent [Not Recovered/Not Resolved]

NARRATIVE: CASE EVENT DATE: 201808
